FAERS Safety Report 12582260 (Version 1)
Quarter: 2016Q3

REPORT INFORMATION
  Report Type: Spontaneous
  Country: US (occurrence: None)
  Receive Date: 20160721
  Receipt Date: 20160721
  Transmission Date: 20161109
  Serious: Yes (Other)
  Sender: FDA-Public Use
  Company Number: None

PATIENT
  Age: 63 Year
  Sex: Male
  Weight: 77.11 kg

DRUGS (4)
  1. TAMSULOSIN HCL CAPS 0 4MG, 0.4 MG ZYDUS PHARM [Suspect]
     Active Substance: TAMSULOSIN HYDROCHLORIDE
     Indication: URINE OUTPUT DECREASED
     Dosage: 98 CAPSULE(S) ONCE DAY TAKEN BY MOUTH
     Route: 048
     Dates: start: 20160719, end: 20160720
  2. MULTIVITAMIN [Concomitant]
     Active Substance: VITAMINS
  3. ASPIRIN. [Concomitant]
     Active Substance: ASPIRIN
  4. LISINOPRIL. [Concomitant]
     Active Substance: LISINOPRIL

REACTIONS (5)
  - Ocular hyperaemia [None]
  - Blood pressure increased [None]
  - Rhinorrhoea [None]
  - Eye irritation [None]
  - Eye swelling [None]

NARRATIVE: CASE EVENT DATE: 20160720
